FAERS Safety Report 24152506 (Version 1)
Quarter: 2024Q3

REPORT INFORMATION
  Report Type: Report from Study
  Country: IN (occurrence: IN)
  Receive Date: 20240730
  Receipt Date: 20240730
  Transmission Date: 20241017
  Serious: Yes (Hospitalization)
  Sender: INCYTE
  Company Number: IN-002147023-NVSC2024IN150255

PATIENT

DRUGS (4)
  1. RUXOLITINIB [Suspect]
     Active Substance: RUXOLITINIB
     Indication: Polycythaemia vera
     Dosage: 5 MG, BID
     Route: 048
     Dates: start: 20210810
  2. RUXOLITINIB [Suspect]
     Active Substance: RUXOLITINIB
     Dosage: 5 MG, BID
     Route: 048
     Dates: start: 20220217
  3. RUXOLITINIB [Suspect]
     Active Substance: RUXOLITINIB
     Dosage: 5 MG, BID
     Route: 048
     Dates: start: 20221221
  4. RUXOLITINIB [Suspect]
     Active Substance: RUXOLITINIB
     Dosage: 5 MG, BID
     Route: 048
     Dates: start: 20230626

REACTIONS (25)
  - Gallbladder disorder [Unknown]
  - Crepitations [Unknown]
  - Nephropathy [Unknown]
  - Pain [Unknown]
  - Cholelithiasis [Unknown]
  - Cough [Unknown]
  - Glossitis [Unknown]
  - Pyrexia [Unknown]
  - Asthenia [Unknown]
  - Off label use [Unknown]
  - Headache [Unknown]
  - Cardiac disorder [Unknown]
  - Hepatosplenomegaly [Unknown]
  - Blood glucose increased [Unknown]
  - Full blood count increased [Unknown]
  - Gastrointestinal wall thickening [Unknown]
  - Bladder hypertrophy [Unknown]
  - Ureteral wall thickening [Unknown]
  - Myalgia [Unknown]
  - Abdominal pain upper [Unknown]
  - Fatigue [Unknown]
  - Musculoskeletal stiffness [Unknown]
  - Abdominal infection [Not Recovered/Not Resolved]
  - Gastrointestinal disorder [Not Recovered/Not Resolved]
  - Upper respiratory tract infection [Unknown]

NARRATIVE: CASE EVENT DATE: 20230626
